FAERS Safety Report 6321627-6 (Version None)
Quarter: 2009Q3

REPORT INFORMATION
  Report Type: 
  Country: None (occurrence: None)
  Receive Date: 20090824
  Receipt Date: 20080114
  Transmission Date: 20100115
  Serious: Yes (Hospitalization, Other)
  Sender: FDA-Public Use
  Company Number: US-ASTRAZENECA-2006UW25025

PATIENT
  Age: 48 Year
  Sex: Female
  Weight: 85.5 kg

DRUGS (13)
  1. SEROQUEL [Suspect]
     Indication: INSOMNIA
     Route: 048
     Dates: start: 20030930, end: 20060101
  2. SEROQUEL [Suspect]
     Route: 048
     Dates: start: 20031212
  3. REGLAN [Concomitant]
     Dates: start: 20020503
  4. INSULIN [Concomitant]
     Dates: start: 20011129
  5. REMERON [Concomitant]
     Route: 048
     Dates: start: 20020503
  6. HUMALOG [Concomitant]
     Dosage: 75/25, 35 UNITS EVERY MORNING AND 25 UNITS EVERY NIGHT
     Dates: start: 20011129
  7. OXYCONTIN [Concomitant]
     Dosage: 30-120 MG
     Route: 048
     Dates: start: 20020503
  8. PHENERGAN [Concomitant]
     Indication: NAUSEA
     Route: 048
     Dates: start: 20020503
  9. PHENERGAN [Concomitant]
     Indication: VOMITING
     Route: 048
     Dates: start: 20020503
  10. PREVACID [Concomitant]
     Route: 048
     Dates: start: 20031212
  11. VIOXX [Concomitant]
     Route: 048
     Dates: start: 20031212
  12. GLUCOPHAGE [Concomitant]
     Dates: start: 20011129
  13. HUMULIN R [Concomitant]
     Dosage: 70/30
     Dates: start: 20011129

REACTIONS (4)
  - DIABETES MELLITUS [None]
  - DIABETES MELLITUS INADEQUATE CONTROL [None]
  - DIABETIC GASTROPARESIS [None]
  - DIABETIC KETOACIDOSIS [None]
